FAERS Safety Report 5034007-0 (Version None)
Quarter: 2006Q2

REPORT INFORMATION
  Report Type: 
  Country: None (occurrence: None)
  Receive Date: 20060626
  Receipt Date: 20060612
  Transmission Date: 20061013
  Serious: Yes (Other)
  Sender: FDA-Public Use
  Company Number: PHRM2006FR01860

PATIENT
  Age: 59 Year
  Sex: Male

DRUGS (5)
  1. TEGRETOL [Suspect]
     Indication: DEPRESSION
     Dosage: 400 MG, BID
     Route: 048
     Dates: start: 20010301
  2. EFFEXOR [Concomitant]
  3. HYTACAND [Concomitant]
  4. LERCAN [Concomitant]
  5. CRESTOR [Concomitant]

REACTIONS (3)
  - RASH [None]
  - RASH PUSTULAR [None]
  - STAPHYLOCOCCAL INFECTION [None]
